FAERS Safety Report 17143221 (Version 1)
Quarter: 2019Q4

REPORT INFORMATION
  Report Type: Report from Study
  Country: US (occurrence: US)
  Receive Date: 20191212
  Receipt Date: 20191212
  Transmission Date: 20200122
  Serious: Yes (Hospitalization, Other)
  Sender: FDA-Public Use
  Company Number: US-ROCHE-2454332

PATIENT
  Age: 50 Year
  Sex: Female
  Weight: 59.02 kg

DRUGS (2)
  1. COUMADIN [Concomitant]
     Active Substance: WARFARIN SODIUM
     Route: 048
  2. OCREVUS [Suspect]
     Active Substance: OCRELIZUMAB
     Indication: RELAPSING-REMITTING MULTIPLE SCLEROSIS
     Dosage: ONGOING:YES
     Route: 042
     Dates: start: 20191004

REACTIONS (7)
  - Musculoskeletal stiffness [Recovering/Resolving]
  - Sciatica [Recovering/Resolving]
  - Sensory disturbance [Unknown]
  - Fall [Unknown]
  - Haematoma [Recovering/Resolving]
  - Hemiparesis [Recovered/Resolved with Sequelae]
  - International normalised ratio abnormal [Not Recovered/Not Resolved]

NARRATIVE: CASE EVENT DATE: 20191015
